FAERS Safety Report 5936245-9 (Version None)
Quarter: 2008Q4

REPORT INFORMATION
  Report Type: 
  Country: None (occurrence: None)
  Receive Date: 20081030
  Receipt Date: 20080710
  Transmission Date: 20090506
  Serious: No
  Sender: FDA-Public Use
  Company Number: A0723871A

PATIENT
  Age: 76 Year
  Sex: Male

DRUGS (1)
  1. SEREVENT [Suspect]
     Route: 055

REACTIONS (2)
  - DRUG INEFFECTIVE [None]
  - PRODUCT QUALITY ISSUE [None]
